FAERS Safety Report 5488549-4 (Version None)
Quarter: 2007Q4

REPORT INFORMATION
  Report Type: 
  Country: None (occurrence: None)
  Receive Date: 20071017
  Receipt Date: 20071012
  Transmission Date: 20080405
  Serious: Yes (Other)
  Sender: FDA-Public Use
  Company Number: CA-ASTRAZENECA-2007UW23868

PATIENT
  Age: 27 Year
  Sex: Female

DRUGS (4)
  1. ATACAND HCT [Suspect]
     Route: 048
  2. MICARDIS HCT [Suspect]
     Route: 048
  3. MULTI-VITAMINS [Concomitant]
  4. LABETALOL [Concomitant]

REACTIONS (3)
  - DRUG EXPOSURE DURING PREGNANCY [None]
  - OLIGOHYDRAMNIOS [None]
  - PREMATURE BABY [None]
